FAERS Safety Report 21247776 (Version 1)
Quarter: 2022Q3

REPORT INFORMATION
  Report Type: Report from Study
  Country: BR (occurrence: BR)
  Receive Date: 20220824
  Receipt Date: 20220824
  Transmission Date: 20221027
  Serious: Yes (Life-Threatening)
  Sender: FDA-Public Use
  Company Number: BR-NOVARTISPH-NVSC2022BR153568

PATIENT
  Age: 70 Year
  Sex: Male

DRUGS (2)
  1. GLIVEC [Suspect]
     Active Substance: IMATINIB MESYLATE
     Indication: Chronic myeloid leukaemia
     Dosage: UNK
     Route: 065
  2. TASIGNA [Suspect]
     Active Substance: NILOTINIB
     Indication: Chronic myeloid leukaemia
     Dosage: UNK
     Route: 065

REACTIONS (16)
  - Feeling abnormal [Unknown]
  - Blood disorder [Not Recovered/Not Resolved]
  - Fall [Recovering/Resolving]
  - Pollakiuria [Not Recovered/Not Resolved]
  - Urinary incontinence [Not Recovered/Not Resolved]
  - Urinary hesitation [Not Recovered/Not Resolved]
  - Hypoglycaemia [Unknown]
  - Stress [Not Recovered/Not Resolved]
  - Blood glucose abnormal [Unknown]
  - Chronic myeloid leukaemia (in remission) [Unknown]
  - Nervous system disorder [Unknown]
  - Illness [Unknown]
  - Fatigue [Not Recovered/Not Resolved]
  - Pain in extremity [Unknown]
  - Headache [Unknown]
  - Drug ineffective [Unknown]
